FAERS Safety Report 10933485 (Version 4)
Quarter: 2015Q2

REPORT INFORMATION
  Report Type: Spontaneous
  Country: JP (occurrence: JP)
  Receive Date: 20150320
  Receipt Date: 20150520
  Transmission Date: 20150821
  Serious: Yes (Hospitalization, Disabling, Other)
  Sender: FDA-Public Use
  Company Number: JP-ASTRAZENECA-2015SE25082

PATIENT
  Age: 65 Year
  Sex: Male
  Weight: 44 kg

DRUGS (16)
  1. RABEPRAZOLE NA [Concomitant]
     Indication: POSTOPERATIVE CARE
     Route: 048
  2. ACTOS [Concomitant]
     Active Substance: PIOGLITAZONE HYDROCHLORIDE
     Route: 048
     Dates: start: 20131129
  3. AMARYL [Concomitant]
     Active Substance: GLIMEPIRIDE
     Route: 048
     Dates: start: 20131129
  4. INOMARL [Concomitant]
     Indication: POSTOPERATIVE CARE
     Route: 048
  5. REBAMIPIDE [Concomitant]
     Active Substance: REBAMIPIDE
     Indication: POSTOPERATIVE CARE
     Route: 048
  6. SEIBULE [Concomitant]
     Active Substance: MIGLITOL
     Indication: TYPE 2 DIABETES MELLITUS
     Route: 048
     Dates: start: 20131129
  7. VOLTAREN [Concomitant]
     Active Substance: DICLOFENAC SODIUM
     Indication: LUMBAR SPINAL STENOSIS
     Route: 054
  8. METGLUCO [Concomitant]
     Active Substance: METFORMIN HYDROCHLORIDE
     Indication: TYPE 2 DIABETES MELLITUS
     Route: 048
     Dates: start: 20131129
  9. MUCOSTA [Concomitant]
     Active Substance: REBAMIPIDE
     Route: 048
  10. GLIMEPIRIDE. [Concomitant]
     Active Substance: GLIMEPIRIDE
     Indication: TYPE 2 DIABETES MELLITUS
     Dosage: MORNING 2 MG, EVENING 1 MG
     Route: 048
  11. FORXIGA [Suspect]
     Active Substance: DAPAGLIFLOZIN
     Indication: TYPE 2 DIABETES MELLITUS
     Route: 048
     Dates: start: 20141211, end: 20150311
  12. TRAZENTA [Concomitant]
     Active Substance: LINAGLIPTIN
     Indication: TYPE 2 DIABETES MELLITUS
     Route: 048
     Dates: start: 20131129
  13. PIOGLITAZONE [Concomitant]
     Active Substance: PIOGLITAZONE
     Indication: TYPE 2 DIABETES MELLITUS
     Route: 048
  14. GASTER [Concomitant]
     Active Substance: FAMOTIDINE
     Route: 048
  15. CRESTOR [Concomitant]
     Active Substance: ROSUVASTATIN CALCIUM
     Indication: DYSLIPIDAEMIA
     Route: 048
  16. PATELL [Concomitant]
     Indication: LUMBAR SPINAL STENOSIS
     Dosage: DOSE UNKNOWN
     Route: 062

REACTIONS (3)
  - Carotid arteriosclerosis [Unknown]
  - Lacunar infarction [Recovered/Resolved with Sequelae]
  - Dehydration [Unknown]

NARRATIVE: CASE EVENT DATE: 20150310
